FAERS Safety Report 8890639 (Version 1)
Quarter: 2012Q4

REPORT INFORMATION
  Report Type: 
  Country: US (occurrence: US)
  Receive Date: 20121106
  Receipt Date: 20121106
  Transmission Date: 20130627
  Serious: Yes (Other)
  Sender: FDA-Public Use
  Company Number: US-ABBOTT-12P-163-1002478-00

PATIENT
  Age: 29 Year
  Sex: Male

DRUGS (10)
  1. KALETRA [Suspect]
     Indication: HIV INFECTION
     Dosage: 200/50 mg two twice daily
     Dates: start: 20121015
  2. TRUVADA [Concomitant]
     Indication: HIV INFECTION
  3. DAPSONE [Concomitant]
     Indication: ANTIFUNGAL PROPHYLAXIS
     Dates: start: 201210
  4. PERCOCET [Concomitant]
     Indication: PAIN
     Dates: start: 201210
  5. MORPHINE [Concomitant]
     Indication: PAIN
     Dates: start: 201210
  6. HEPARIN [Concomitant]
     Indication: THROMBOSIS PROPHYLAXIS
     Route: 058
     Dates: start: 201210
  7. PEPCID [Concomitant]
     Indication: STRESS ULCER
     Dates: start: 201210
  8. PEPCID [Concomitant]
     Indication: PROPHYLAXIS
  9. ALBUTEROL [Concomitant]
     Indication: PRODUCT USED FOR UNKNOWN INDICATION
     Route: 055
     Dates: start: 201210
  10. DILANTIN (NON-ABBOTT) [Concomitant]
     Indication: CONVULSION
     Dates: start: 201210

REACTIONS (2)
  - Wound infection staphylococcal [Not Recovered/Not Resolved]
  - Cytomegalovirus chorioretinitis [Not Recovered/Not Resolved]
